FAERS Safety Report 10528881 (Version 1)
Quarter: 2014Q4

REPORT INFORMATION
  Report Type: Spontaneous
  Country: MX (occurrence: MX)
  Receive Date: 20141020
  Receipt Date: 20141020
  Transmission Date: 20150528
  Serious: Yes (Hospitalization)
  Sender: FDA-Public Use
  Company Number: MX-KOWA-2014S1001360

PATIENT
  Age: 57 Year
  Sex: Female

DRUGS (1)
  1. REDEVANT (PITAVASTATIN) [Suspect]
     Active Substance: PITAVASTATIN
     Route: 048

REACTIONS (1)
  - Feeling abnormal [Unknown]
